FAERS Safety Report 18700311 (Version 1)
Quarter: 2021Q1

REPORT INFORMATION
  Report Type: Spontaneous
  Country: US (occurrence: US)
  Receive Date: 20210104
  Receipt Date: 20210104
  Transmission Date: 20210419
  Serious: No
  Sender: FDA-Public Use
  Company Number: None

PATIENT
  Age: 38 Year
  Sex: Male

DRUGS (1)
  1. GLEEVEC [Suspect]
     Active Substance: IMATINIB MESYLATE
     Route: 048
     Dates: start: 20200825, end: 20201220

REACTIONS (4)
  - Feeling abnormal [None]
  - Arthralgia [None]
  - Fatigue [None]
  - Bone pain [None]

NARRATIVE: CASE EVENT DATE: 20201228
